FAERS Safety Report 8862732 (Version 1)
Quarter: 2012Q4

REPORT INFORMATION
  Report Type: 
  Country: US (occurrence: US)
  Receive Date: 20121026
  Receipt Date: 20121026
  Transmission Date: 20130627
  Serious: No
  Sender: FDA-Public Use
  Company Number: US-ALLERGAN-1211939US

PATIENT
  Age: 82 Year
  Sex: Female

DRUGS (8)
  1. ALPHAGAN P [Suspect]
     Indication: GLAUCOMA
     Dosage: 2 Gtt, bid
     Route: 047
  2. XOPENEX [Concomitant]
     Indication: COPD
     Dosage: 2 UNK, UNK
     Route: 055
  3. SINGULAIR                          /01362601/ [Concomitant]
     Indication: DRUG USE FOR UNKNOWN INDICATION
     Dosage: 10 mg, UNK
     Route: 048
  4. FORADIL                            /00958001/ [Concomitant]
     Indication: DRUG USE FOR UNKNOWN INDICATION
  5. NATURAL TEARS [Concomitant]
     Indication: DRY EYES
  6. ASPIRIN [Concomitant]
     Indication: DRUG USE FOR UNKNOWN INDICATION
     Dosage: 81 mg, UNK
     Route: 048
  7. LORAZEPAM [Concomitant]
     Indication: PANIC DISORDER NOS
     Dosage: 0.5 mg, UNK
     Route: 048
  8. NEVANAC [Concomitant]
     Indication: DISORDER EYE
     Dosage: 1 Gtt, qam
     Route: 047

REACTIONS (2)
  - Vision blurred [Not Recovered/Not Resolved]
  - Vision blurred [Recovered/Resolved]
